FAERS Safety Report 20448336 (Version 8)
Quarter: 2022Q3

REPORT INFORMATION
  Report Type: Report from Study
  Country: US (occurrence: US)
  Receive Date: 20220209
  Receipt Date: 20220705
  Transmission Date: 20221027
  Serious: Yes (Other)
  Sender: FDA-Public Use
  Company Number: US-GLAXOSMITHKLINE-US2022019651

PATIENT

DRUGS (8)
  1. NIRAPARIB [Suspect]
     Active Substance: NIRAPARIB
     Indication: Ovarian cancer
     Dosage: 100 MG, QD
     Dates: start: 20220120
  2. NIRAPARIB [Suspect]
     Active Substance: NIRAPARIB
     Dosage: 200 MG, QD
     Route: 048
  3. NIRAPARIB [Suspect]
     Active Substance: NIRAPARIB
     Dosage: 100 MG, QD
  4. NIRAPARIB [Suspect]
     Active Substance: NIRAPARIB
     Dosage: 100 MG, QD
  5. NIRAPARIB [Suspect]
     Active Substance: NIRAPARIB
     Dosage: 100 MG, QD
  6. VITAMIN D3 [Concomitant]
     Active Substance: CHOLECALCIFEROL
     Indication: Product used for unknown indication
     Dosage: UNK
  7. METOPROLOL [Concomitant]
     Active Substance: METOPROLOL
     Indication: Product used for unknown indication
     Dosage: UNK
  8. GABAPENTIN [Concomitant]
     Active Substance: GABAPENTIN
     Indication: Product used for unknown indication
     Dosage: UNK

REACTIONS (20)
  - Neuropathy peripheral [Unknown]
  - Headache [Unknown]
  - Blood pressure increased [Unknown]
  - Fatigue [Not Recovered/Not Resolved]
  - Stress [Not Recovered/Not Resolved]
  - Arthritis [Unknown]
  - Abdominal pain upper [Unknown]
  - Vomiting [Unknown]
  - Flatulence [Unknown]
  - Mouth ulceration [Unknown]
  - Blood magnesium decreased [Unknown]
  - Hepatic steatosis [Recovering/Resolving]
  - Dyspnoea [Unknown]
  - Insomnia [Not Recovered/Not Resolved]
  - Decreased activity [Unknown]
  - Gait inability [Unknown]
  - Memory impairment [Not Recovered/Not Resolved]
  - Poor quality sleep [Unknown]
  - Dizziness [Not Recovered/Not Resolved]
  - Product dose omission in error [Unknown]
